FAERS Safety Report 16012541 (Version 1)
Quarter: 2019Q1

REPORT INFORMATION
  Report Type: Report from Study
  Country: US (occurrence: US)
  Receive Date: 20190227
  Receipt Date: 20190227
  Transmission Date: 20190418
  Serious: No
  Sender: FDA-Public Use
  Company Number: US-DOVA PHARMACEUTICALS INC.-DOV-000237

PATIENT
  Age: 44 Year
  Sex: Female
  Weight: 108.84 kg

DRUGS (7)
  1. AZATHIOPRINE. [Concomitant]
     Active Substance: AZATHIOPRINE
     Indication: PRODUCT USED FOR UNKNOWN INDICATION
     Dosage: UNK
  2. WELLBUTRIN [Concomitant]
     Active Substance: BUPROPION HYDROCHLORIDE
     Indication: PRODUCT USED FOR UNKNOWN INDICATION
     Dosage: UNK
  3. DOPTELET [Suspect]
     Active Substance: AVATROMBOPAG MALEATE
     Indication: LIVER DISORDER
  4. DOPTELET [Suspect]
     Active Substance: AVATROMBOPAG MALEATE
     Indication: ENDOSCOPY UPPER GASTROINTESTINAL TRACT
     Dosage: 60 MG, QD
     Route: 048
     Dates: start: 20181201, end: 20181205
  5. PROTONIX [Concomitant]
     Active Substance: PANTOPRAZOLE SODIUM
     Indication: PRODUCT USED FOR UNKNOWN INDICATION
     Dosage: UNK
  6. TYLENOL [Concomitant]
     Active Substance: ACETAMINOPHEN
     Indication: PRODUCT USED FOR UNKNOWN INDICATION
     Dosage: UNK, PRN
     Route: 048
  7. ADVIL [Concomitant]
     Active Substance: IBUPROFEN
     Indication: PRODUCT USED FOR UNKNOWN INDICATION
     Dosage: UNK UNK, PRN
     Route: 048

REACTIONS (1)
  - Platelet count decreased [Unknown]

NARRATIVE: CASE EVENT DATE: 20190104
